FAERS Safety Report 18139463 (Version 1)
Quarter: 2020Q3

REPORT INFORMATION
  Report Type: Spontaneous
  Country: US (occurrence: US)
  Receive Date: 20200812
  Receipt Date: 20200812
  Transmission Date: 20201103
  Serious: Yes (Other)
  Sender: FDA-Public Use
  Company Number: US-AMERICAN REGENT INC-2020001613

PATIENT
  Age: 32 Year
  Sex: Female

DRUGS (3)
  1. LEVETIRACETAM INJECTION (0517?3605?01) [Suspect]
     Active Substance: LEVETIRACETAM
     Indication: SEIZURE
     Dosage: 2000 MILLIGRAM, QD
     Route: 065
  2. CARBAMAZEPINE. [Suspect]
     Active Substance: CARBAMAZEPINE
     Indication: SEIZURE
     Dosage: 800 MILLIGRAM, QD
     Route: 065
  3. LEVETIRACETAM INJECTION (0517?3605?01) [Suspect]
     Active Substance: LEVETIRACETAM
     Dosage: 3500 MILLIGRAM (GRADUALLY INCREASED)
     Route: 065

REACTIONS (3)
  - Drug ineffective [Recovered/Resolved]
  - Seizure [Recovered/Resolved]
  - Maternal exposure during pregnancy [Recovered/Resolved]
